FAERS Safety Report 7083460-X (Version None)
Quarter: 2010Q4

REPORT INFORMATION
  Report Type: 
  Country: None (occurrence: None)
  Receive Date: 20101104
  Receipt Date: 20101027
  Transmission Date: 20110411
  Serious: Yes (Hospitalization)
  Sender: FDA-Public Use
  Company Number: B0681467A

PATIENT
  Sex: Male

DRUGS (4)
  1. DEROXAT [Suspect]
     Dosage: 1UNIT PER DAY
     Route: 048
     Dates: start: 20100626, end: 20101014
  2. AMITRIPTYLINE HCL [Concomitant]
     Dosage: 50MG PER DAY
     Route: 048
     Dates: start: 20100626
  3. TANGANIL [Concomitant]
     Dosage: 1G PER DAY
     Route: 048
     Dates: start: 20100626
  4. TIAPRIDAL [Concomitant]
     Dosage: 300MG PER DAY
     Route: 048
     Dates: start: 20100626

REACTIONS (7)
  - AGGRESSION [None]
  - AGITATION [None]
  - BLOOD CREATINE PHOSPHOKINASE INCREASED [None]
  - HYPERGLYCAEMIA [None]
  - PERSONALITY CHANGE [None]
  - SEROTONIN SYNDROME [None]
  - TACHYCARDIA [None]
